FAERS Safety Report 6834872-8 (Version None)
Quarter: 2010Q3

REPORT INFORMATION
  Report Type: 
  Country: None (occurrence: None)
  Receive Date: 20100712
  Receipt Date: 20070601
  Transmission Date: 20110219
  Serious: No
  Sender: FDA-Public Use
  Company Number: US-PFIZER INC-2007025759

PATIENT
  Sex: Female
  Weight: 73.5 kg

DRUGS (4)
  1. CHANTIX [Suspect]
     Indication: SMOKING CESSATION THERAPY
     Route: 048
     Dates: start: 20070316
  2. XANAX [Concomitant]
  3. ALL OTHER THERAPEUTIC PRODUCTS [Concomitant]
  4. CAFFEINE [Concomitant]

REACTIONS (6)
  - ABDOMINAL DISCOMFORT [None]
  - DRY MOUTH [None]
  - NAUSEA [None]
  - PRURITUS [None]
  - RESTLESSNESS [None]
  - URTICARIA [None]
